FAERS Safety Report 22316548 (Version 1)
Quarter: 2023Q2

REPORT INFORMATION
  Report Type: Spontaneous
  Country: US (occurrence: US)
  Receive Date: 20230513
  Receipt Date: 20230513
  Transmission Date: 20230721
  Serious: No
  Sender: FDA-Public Use
  Company Number: US-JNJFOC-20230516512

PATIENT
  Age: 72 Year
  Sex: Female

DRUGS (6)
  1. MOTRIN [Suspect]
     Active Substance: IBUPROFEN
     Indication: Headache
     Route: 065
  2. MOTRIN [Suspect]
     Active Substance: IBUPROFEN
     Indication: Migraine
  3. ASPIRIN [Concomitant]
     Active Substance: ASPIRIN
     Indication: Occipital neuralgia
     Route: 065
  4. CAFFEINE [Concomitant]
     Active Substance: CAFFEINE
     Indication: Occipital neuralgia
     Route: 065
  5. CODEINE PHOSPHATE [Concomitant]
     Active Substance: CODEINE PHOSPHATE
     Indication: Occipital neuralgia
     Route: 065
  6. BUTALBITAL [Concomitant]
     Active Substance: BUTALBITAL
     Indication: Occipital neuralgia
     Route: 065

REACTIONS (1)
  - Abdominal discomfort [Unknown]
